FAERS Safety Report 18234937 (Version 1)
Quarter: 2020Q3

REPORT INFORMATION
  Report Type: Spontaneous
  Country: IL (occurrence: IL)
  Receive Date: 20200904
  Receipt Date: 20200904
  Transmission Date: 20201103
  Serious: Yes (Hospitalization, Other)
  Sender: FDA-Public Use
  Company Number: IL-GLAXOSMITHKLINE-IL2020GSK175543

PATIENT
  Age: 44 Year
  Sex: Female

DRUGS (2)
  1. CARVEDILOL. [Suspect]
     Active Substance: CARVEDILOL
     Indication: MARFAN^S SYNDROME
     Dosage: 6.25 MG, BID
  2. RAMIPRIL. [Suspect]
     Active Substance: RAMIPRIL
     Indication: MARFAN^S SYNDROME
     Dosage: 2.5 MG/DAY

REACTIONS (19)
  - Condition aggravated [Unknown]
  - Drug ineffective [Unknown]
  - False lumen dilatation of aortic dissection [Unknown]
  - Dyspnoea [Unknown]
  - Pyrexia [Unknown]
  - Tricuspid valve incompetence [Unknown]
  - Portal hypertension [Unknown]
  - Left ventricular dilatation [Unknown]
  - Aortic valve incompetence [Unknown]
  - Iliac artery dissection [Unknown]
  - Chest pain [Unknown]
  - Mitral valve incompetence [Unknown]
  - Pericardial effusion [Unknown]
  - Aortic thrombosis [Unknown]
  - Treatment noncompliance [Unknown]
  - Aortic dissection [Unknown]
  - Blood pressure abnormal [Recovered/Resolved]
  - Back pain [Unknown]
  - Systolic dysfunction [Unknown]
